FAERS Safety Report 9656587 (Version 1)
Quarter: 2013Q4

REPORT INFORMATION
  Report Type: Spontaneous
  Country: US (occurrence: US)
  Receive Date: 20131030
  Receipt Date: 20131030
  Transmission Date: 20140711
  Serious: No
  Sender: FDA-Public Use
  Company Number: US-GLAXOSMITHKLINE-A1020365A

PATIENT
  Age: 65 Year
  Sex: Female

DRUGS (8)
  1. SEREVENT [Suspect]
     Indication: ASTHMA
     Dosage: 1PUFF TWICE PER DAY
     Route: 055
     Dates: start: 200907
  2. PREVACID [Concomitant]
  3. FLOVENT [Concomitant]
  4. PREMPRO [Concomitant]
  5. ZOLOFT [Concomitant]
  6. LOVASTATIN [Concomitant]
  7. SINGULAIR [Concomitant]
  8. AMLODIPINE [Concomitant]

REACTIONS (2)
  - Dyspnoea [Unknown]
  - Product quality issue [Unknown]
